FAERS Safety Report 7475631-5 (Version None)
Quarter: 2011Q2

REPORT INFORMATION
  Report Type: 
  Country: None (occurrence: None)
  Receive Date: 20110510
  Receipt Date: 20110510
  Transmission Date: 20111010
  Serious: Yes (Disabling)
  Sender: FDA-Public Use
  Company Number: None

PATIENT
  Age: 38 Year
  Sex: Female
  Weight: 66 kg

DRUGS (6)
  1. FLUOXETINE [Concomitant]
  2. NEXIUM [Concomitant]
  3. VERPAMIL HCL [Concomitant]
  4. HYDROXYZINE [Concomitant]
  5. TOPIRAMATE [Suspect]
     Indication: PROPHYLAXIS
     Dates: start: 20110325, end: 20110401
  6. TOPIRAMATE [Suspect]
     Indication: MIGRAINE
     Dates: start: 20110325, end: 20110401

REACTIONS (2)
  - MYOPIA [None]
  - EYE PAIN [None]
